FAERS Safety Report 13386060 (Version 1)
Quarter: 2017Q1

REPORT INFORMATION
  Report Type: Spontaneous
  Country: US (occurrence: US)
  Receive Date: 20170330
  Receipt Date: 20170330
  Transmission Date: 20170429
  Serious: No
  Sender: FDA-Public Use
  Company Number: US-PERRIGO-16US019794

PATIENT
  Sex: Female
  Weight: 77.98 kg

DRUGS (1)
  1. FAMOTIDINE, CALCIUM CARBONATE, AND MAGNESIUM HYDROXIDE [Suspect]
     Active Substance: CALCIUM CARBONATE\FAMOTIDINE\MAGNESIUM HYDROXIDE
     Indication: DYSPEPSIA
     Dosage: HALF TABLET, PRN
     Route: 048
     Dates: start: 2015, end: 20160905

REACTIONS (5)
  - Expired product administered [Recovered/Resolved]
  - Diarrhoea [Recovered/Resolved]
  - Wrong technique in product usage process [Recovered/Resolved]
  - Underdose [Recovered/Resolved]
  - Abdominal pain upper [Recovered/Resolved]

NARRATIVE: CASE EVENT DATE: 2015
